FAERS Safety Report 10220912 (Version 1)
Quarter: 2014Q2

REPORT INFORMATION
  Report Type: Spontaneous
  Country: FR (occurrence: FR)
  Receive Date: 20140606
  Receipt Date: 20140606
  Transmission Date: 20141212
  Serious: Yes (Hospitalization)
  Sender: FDA-Public Use
  Company Number: FR-ELI_LILLY_AND_COMPANY-FR201405008572

PATIENT
  Age: 70 Year
  Sex: Male

DRUGS (1)
  1. ZYPREXA [Suspect]
     Indication: MENTAL DISORDER
     Dosage: 1 DF, UNKNOWN
     Route: 048
     Dates: start: 20140320, end: 20140404

REACTIONS (6)
  - Epilepsy [Recovered/Resolved]
  - Hydrocephalus [Unknown]
  - VIIth nerve paralysis [Unknown]
  - Hypertonia [Unknown]
  - Pyrexia [Unknown]
  - White blood cell count increased [Unknown]
